FAERS Safety Report 6802157-1 (Version None)
Quarter: 2010Q2

REPORT INFORMATION
  Report Type: 
  Country: None (occurrence: None)
  Receive Date: 20100629
  Receipt Date: 20090319
  Transmission Date: 20101027
  Serious: Yes (Other)
  Sender: FDA-Public Use
  Company Number: US-PFIZER INC-2008095139

PATIENT
  Sex: Male

DRUGS (12)
  1. SUTENT [Suspect]
     Dosage: 50 MG, 1X/DAY
     Dates: start: 20081001
  2. SUTENT [Suspect]
     Dosage: 50 MG, 1X/DAY
     Dates: start: 20081106
  3. DIOVANE [Concomitant]
     Indication: HYPERTENSION
     Dosage: 80MG
  4. DIOVANE [Concomitant]
     Dosage: 160MG
  5. HYDROCHLOROTHIAZIDE [Concomitant]
     Dosage: UNK
  6. TOPROL-XL [Concomitant]
     Dosage: 50MG
  7. CATAFLAM [Concomitant]
     Dosage: 50 MG, 3X/DAY
  8. LIPITOR [Concomitant]
     Dosage: 10 MG, 1X/DAY
  9. ASPIRINE [Concomitant]
     Dosage: 81 MBQ, 1X/DAY
  10. CENTRUM SILVER [Concomitant]
     Dosage: UNK
  11. VITAMIN D [Concomitant]
     Dosage: 400 MG, 1X/DAY
  12. CLARITIN [Concomitant]
     Indication: HYPERSENSITIVITY
     Dosage: UNK

REACTIONS (3)
  - BLOOD PRESSURE INCREASED [None]
  - DIARRHOEA [None]
  - FLUSHING [None]
